FAERS Safety Report 7078741-X (Version None)
Quarter: 2010Q4

REPORT INFORMATION
  Report Type: 
  Country: None (occurrence: None)
  Receive Date: 20101102
  Receipt Date: 20101029
  Transmission Date: 20110411
  Serious: Yes (Disabling, Other)
  Sender: FDA-Public Use
  Company Number: GB-PFIZER INC-2010054687

PATIENT
  Age: 50 Year
  Sex: Female

DRUGS (7)
  1. LIPITOR [Suspect]
     Dosage: 10 MG, UNK
     Dates: start: 19981113, end: 20061128
  2. LIPITOR [Suspect]
     Dosage: 40 MG, UNK
     Dates: start: 20030310
  3. SIMVASTATIN [Suspect]
     Dosage: UNK
  4. SIMVASTATIN [Suspect]
     Dosage: 10 MG, UNK
  5. EVOREL CONTI [Concomitant]
     Dosage: 1 DF, 2X/DAY
  6. ESTRADIOL/NORETHISTERONE ACETATE [Concomitant]
     Dosage: UNK
  7. LANSOPRAZOLE [Concomitant]

REACTIONS (59)
  - ABDOMINAL DISTENSION [None]
  - ABDOMINAL PAIN UPPER [None]
  - ANGIOEDEMA [None]
  - ANXIETY [None]
  - ARTHRITIS [None]
  - ASTHENIA [None]
  - BLEPHARITIS [None]
  - BLOOD CHOLESTEROL INCREASED [None]
  - BLOOD PRESSURE INCREASED [None]
  - CANDIDIASIS [None]
  - CHEST PAIN [None]
  - CLUMSINESS [None]
  - CONJUNCTIVITIS [None]
  - DEPRESSION [None]
  - DRUG HYPERSENSITIVITY [None]
  - DRUG INEFFECTIVE [None]
  - DRY MOUTH [None]
  - DYSGEUSIA [None]
  - DYSPEPSIA [None]
  - FATIGUE [None]
  - FIBROMYALGIA [None]
  - GASTRIC DISORDER [None]
  - GASTRIC ULCER [None]
  - GASTROENTERITIS [None]
  - HYPERSENSITIVITY [None]
  - IMPAIRED HEALING [None]
  - IMPAIRED WORK ABILITY [None]
  - INFLUENZA LIKE ILLNESS [None]
  - INSOMNIA [None]
  - IRRITABLE BOWEL SYNDROME [None]
  - JOINT INJURY [None]
  - MALAISE [None]
  - MEMORY IMPAIRMENT [None]
  - MENOPAUSAL SYMPTOMS [None]
  - MUSCLE ATROPHY [None]
  - MUSCLE INJURY [None]
  - MUSCLE SPASMS [None]
  - MUSCULOSKELETAL PAIN [None]
  - MUSCULOSKELETAL STIFFNESS [None]
  - MYALGIA [None]
  - NAUSEA [None]
  - NON-CARDIAC CHEST PAIN [None]
  - OEDEMA PERIPHERAL [None]
  - PAIN IN EXTREMITY [None]
  - PALPITATIONS [None]
  - PANIC ATTACK [None]
  - PHOTOSENSITIVITY REACTION [None]
  - POST VIRAL FATIGUE SYNDROME [None]
  - PRURITUS [None]
  - QUALITY OF LIFE DECREASED [None]
  - RESTLESS LEGS SYNDROME [None]
  - ROAD TRAFFIC ACCIDENT [None]
  - SALIVARY HYPERSECRETION [None]
  - SEASONAL ALLERGY [None]
  - SOMATOFORM DISORDER [None]
  - UNEVALUABLE EVENT [None]
  - UPPER RESPIRATORY TRACT INFECTION [None]
  - URTICARIA [None]
  - VIRAL INFECTION [None]
